FAERS Safety Report 18493444 (Version 1)
Quarter: 2020Q4

REPORT INFORMATION
  Report Type: Other
  Country: NG (occurrence: NG)
  Receive Date: 20201112
  Receipt Date: 20201112
  Transmission Date: 20210114
  Serious: Yes (Hospitalization)
  Sender: FDA-Public Use
  Company Number: NG-ROCHE-2707377

PATIENT
  Age: 34 Year
  Sex: Female

DRUGS (1)
  1. BEVACIZUMAB. [Suspect]
     Active Substance: BEVACIZUMAB
     Indication: RETINOPATHY SICKLE CELL
     Route: 050

REACTIONS (3)
  - Endophthalmitis [Recovered/Resolved]
  - Intentional product use issue [Unknown]
  - Off label use [Unknown]
